FAERS Safety Report 20152362 (Version 1)
Quarter: 2021Q4

REPORT INFORMATION
  Report Type: Spontaneous
  Country: US (occurrence: US)
  Receive Date: 20211206
  Receipt Date: 20211206
  Transmission Date: 20220303
  Serious: Yes (Other)
  Sender: FDA-Public Use
  Company Number: US-VIRTUS PHARMACEUTICALS, LLC-2021VTS00061

PATIENT
  Age: 13 Year
  Sex: Male
  Weight: 60 kg

DRUGS (1)
  1. NALOXONE HYDROCHLORIDE [Suspect]
     Active Substance: NALOXONE HYDROCHLORIDE
     Indication: Respiratory depression
     Dosage: 200 ?G GIVEN IN DIVIDED DOSES
     Route: 065

REACTIONS (2)
  - Haemoptysis [Recovering/Resolving]
  - Pulmonary oedema [Recovering/Resolving]
